FAERS Safety Report 5211730-6 (Version None)
Quarter: 2007Q1

REPORT INFORMATION
  Report Type: 
  Country: None (occurrence: None)
  Receive Date: 20070118
  Receipt Date: 20070108
  Transmission Date: 20070707
  Serious: Yes (Hospitalization)
  Sender: FDA-Public Use
  Company Number: FR-BAYER-200710034BFR

PATIENT
  Age: 33 Year
  Sex: Male
  Weight: 80 kg

DRUGS (7)
  1. CIPROFLOXACIN [Suspect]
     Indication: COUGH
     Route: 042
     Dates: start: 20060204, end: 20060208
  2. ROCEPHIN [Suspect]
     Indication: COUGH
     Route: 042
     Dates: start: 20060204, end: 20060208
  3. RIFINAH [Suspect]
     Indication: UNEVALUABLE EVENT
     Route: 048
     Dates: start: 20051009, end: 20060209
  4. SUSTIVA [Suspect]
     Indication: UNEVALUABLE EVENT
     Route: 048
     Dates: start: 20051009, end: 20060209
  5. TRUVADA [Concomitant]
     Indication: UNEVALUABLE EVENT
     Dates: start: 20051009, end: 20060209
  6. FRAXODI [Concomitant]
     Indication: UNEVALUABLE EVENT
     Dates: start: 20051009, end: 20060209
  7. TRANXENE [Concomitant]
     Indication: UNEVALUABLE EVENT
     Dates: start: 20051009, end: 20060209

REACTIONS (8)
  - ALANINE AMINOTRANSFERASE INCREASED [None]
  - ASPARTATE AMINOTRANSFERASE INCREASED [None]
  - CELL DEATH [None]
  - CHOLESTASIS [None]
  - HAEMOLYTIC ANAEMIA [None]
  - HEMIPLEGIA [None]
  - HYPERBILIRUBINAEMIA [None]
  - JAUNDICE [None]
